FAERS Safety Report 9080338 (Version 1)
Quarter: 2013Q1

REPORT INFORMATION
  Report Type: Report from Study
  Country: US (occurrence: US)
  Receive Date: 20130130
  Receipt Date: 20130130
  Transmission Date: 20140127
  Serious: No
  Sender: FDA-Public Use
  Company Number: US-ABBOTT-12P-163-0959702-00

PATIENT
  Age: 60 None
  Sex: Female

DRUGS (7)
  1. HUMIRA 40 MG/0.8 ML PEN [Suspect]
     Indication: RHEUMATOID ARTHRITIS
     Dates: start: 2010
  2. HUMIRA 40 MG/0.8 ML PEN [Suspect]
  3. NAPROXEN [Concomitant]
     Indication: RHEUMATOID ARTHRITIS
     Dosage: 500 MG TABS A DAY
  4. LISINOPRIL [Concomitant]
     Indication: PROPHYLAXIS
  5. PREMARIN [Concomitant]
     Indication: PRODUCT USED FOR UNKNOWN INDICATION
     Dosage: 0.9 MG DAILY
  6. CALCIUM [Concomitant]
     Indication: PRODUCT USED FOR UNKNOWN INDICATION
     Dosage: 600 MG ONCE A DAY
  7. ZYRTEC [Concomitant]
     Indication: SINUS DISORDER

REACTIONS (17)
  - Injection site pain [Recovered/Resolved]
  - Rash [Not Recovered/Not Resolved]
  - Incorrect dose administered [Recovered/Resolved]
  - Device malfunction [Unknown]
  - Rheumatoid arthritis [Unknown]
  - Pain [Unknown]
  - Local swelling [Unknown]
  - Injection site pain [Unknown]
  - Wrong technique in drug usage process [Unknown]
  - Incorrect dose administered [Unknown]
  - Injection site haemorrhage [Unknown]
  - Injection site discolouration [Unknown]
  - Injection site erythema [Unknown]
  - Injection site rash [Unknown]
  - Needle issue [Unknown]
  - Injection site reaction [Unknown]
  - Drug ineffective [Unknown]
